FAERS Safety Report 8162894 (Version 6)
Quarter: 2015Q4

REPORT INFORMATION
  Report Type: Spontaneous
  Country: US (occurrence: US)
  Receive Date: 20110930
  Receipt Date: 20151124
  Transmission Date: 20160305
  Serious: Yes (Hospitalization, Other)
  Sender: FDA-Public Use
  Company Number: US-BAYER-2011-091593

PATIENT
  Age: 33 Year
  Sex: Female
  Weight: 90.7 kg

DRUGS (3)
  1. YAZ [Suspect]
     Active Substance: DROSPIRENONE\ETHINYL ESTRADIOL
     Dosage: UNK
     Dates: start: 200804, end: 200903
  2. TOPIRAMATE. [Concomitant]
     Active Substance: TOPIRAMATE
     Indication: SEIZURE
  3. YAZ [Suspect]
     Active Substance: DROSPIRENONE\ETHINYL ESTRADIOL

REACTIONS (9)
  - Cerebrovascular accident [None]
  - Embolism arterial [None]
  - Anxiety [None]
  - Cerebral infarction [Recovered/Resolved with Sequelae]
  - Anhedonia [None]
  - General physical health deterioration [None]
  - Pain [None]
  - Emotional distress [None]
  - Injury [None]

NARRATIVE: CASE EVENT DATE: 200903
